APPROVED DRUG PRODUCT: ZTALMY
Active Ingredient: GANAXOLONE
Strength: 50MG/ML
Dosage Form/Route: SUSPENSION;ORAL
Application: N215904 | Product #001
Applicant: MARINUS PHARMACEUTICALS INC
Approved: Jun 1, 2022 | RLD: Yes | RS: Yes | Type: RX

PATENTS:
Patent 12144801 | Expires: Aug 10, 2037
Patent 8618087 | Expires: Nov 28, 2026
Patent 12115169 | Expires: Sep 30, 2042
Patent 12268696 | Expires: Sep 30, 2042
Patent 10603308 | Expires: Aug 10, 2037
Patent 9056116 | Expires: Nov 28, 2026
Patent 7858609 | Expires: Nov 28, 2026
Patent 8022054 | Expires: Nov 28, 2026
Patent 8367651 | Expires: Nov 28, 2026
Patent 9029355 | Expires: Nov 28, 2026
Patent 8318714 | Expires: Nov 28, 2026

EXCLUSIVITY:
Code: D-197 | Date: Oct 16, 2028
Code: NCE | Date: Jun 1, 2027
Code: ODE-395 | Date: Jun 1, 2029